FAERS Safety Report 6142222-8 (Version None)
Quarter: 2009Q2

REPORT INFORMATION
  Report Type: 
  Country: None (occurrence: None)
  Receive Date: 20090403
  Receipt Date: 20070719
  Transmission Date: 20091009
  Serious: Yes (Death, Hospitalization)
  Sender: FDA-Public Use
  Company Number: US-ASTRAZENECA-2007UW05655

PATIENT
  Age: 20238 Day
  Sex: Male
  Weight: 87.1 kg

DRUGS (30)
  1. SEROQUEL [Suspect]
     Indication: SCHIZOPHRENIA
     Route: 048
     Dates: start: 20021202, end: 20050509
  2. SEROQUEL [Suspect]
     Indication: POOR QUALITY SLEEP
     Route: 048
     Dates: start: 20021202, end: 20050509
  3. SEROQUEL [Suspect]
     Dosage: 100-600 MG
     Route: 048
     Dates: start: 20021122, end: 20060516
  4. SEROQUEL [Suspect]
     Dosage: 100-600 MG
     Route: 048
     Dates: start: 20021122, end: 20060516
  5. PANTOPRAZOL [Concomitant]
  6. ACETAMINOPHEN [Concomitant]
  7. DIVALPROEX SODIUM [Concomitant]
  8. INJ. HALDOL DECANOATE [Concomitant]
  9. COGENTIN [Concomitant]
  10. HYDROXYZINE [Concomitant]
  11. ALENDRONATE SODIUM [Concomitant]
  12. SERTRALINE HCL [Concomitant]
  13. SIMVASTATIN [Concomitant]
  14. HALDOL [Concomitant]
  15. ASPIRIN [Concomitant]
  16. TRIAMTERENE AND HYDROCHLOROTHIAZIDE [Concomitant]
  17. CALCIUM [Concomitant]
  18. SYNTHROID [Concomitant]
  19. TERAZOSIN HCL [Concomitant]
  20. ATENOLOL [Concomitant]
  21. BENZTROPINE MESYLATE [Concomitant]
  22. CHLORPROMAZINE HCL [Concomitant]
  23. VIT D [Concomitant]
  24. MELOXICAM [Concomitant]
  25. MULTI-VITAMIN [Concomitant]
  26. NIACIN [Concomitant]
  27. RISPERIDONE [Concomitant]
  28. TYLENOL [Concomitant]
  29. GLYBURIDE [Concomitant]
  30. INSULIN [Concomitant]

REACTIONS (11)
  - ARTHRALGIA [None]
  - BENIGN PROSTATIC HYPERPLASIA [None]
  - CONSTIPATION [None]
  - DEATH [None]
  - ERECTILE DYSFUNCTION [None]
  - HALLUCINATION, AUDITORY [None]
  - INSOMNIA [None]
  - LUMBAR RADICULOPATHY [None]
  - NAIL DYSTROPHY [None]
  - SUICIDAL IDEATION [None]
  - TYPE 2 DIABETES MELLITUS [None]
